FAERS Safety Report 6419136-9 (Version None)
Quarter: 2009Q4

REPORT INFORMATION
  Report Type: 
  Country: None (occurrence: None)
  Receive Date: 20091028
  Receipt Date: 20091028
  Transmission Date: 20100525
  Serious: Yes (Other)
  Sender: FDA-Public Use
  Company Number: None

PATIENT
  Age: 59 Year
  Sex: Female
  Weight: 79.3795 kg

DRUGS (1)
  1. ADDERALL 20 [Suspect]
     Indication: HYPERSOMNIA
     Dosage: 20 MG 3 TIMES PER DAY PO
     Route: 048
     Dates: start: 20091003, end: 20091027

REACTIONS (10)
  - ABNORMAL DREAMS [None]
  - ACTIVITIES OF DAILY LIVING IMPAIRED [None]
  - DEPRESSION [None]
  - DRUG INTERACTION [None]
  - FEELING ABNORMAL [None]
  - HEADACHE [None]
  - IRRITABILITY [None]
  - PRODUCT QUALITY ISSUE [None]
  - PRODUCT SUBSTITUTION ISSUE [None]
  - SOMNOLENCE [None]
